FAERS Safety Report 15041871 (Version 1)
Quarter: 2018Q3

REPORT INFORMATION
  Report Type: Spontaneous
  Country: US (occurrence: US)
  Receive Date: 20180621
  Receipt Date: 20180621
  Transmission Date: 20181010
  Serious: No
  Sender: FDA-Public Use
  Company Number: US-THE MEDICINES COMPANY-US-MDCO-17-00412

PATIENT
  Age: 11 Year
  Sex: Female

DRUGS (2)
  1. MINOCIN [Suspect]
     Active Substance: MINOCYCLINE HYDROCHLORIDE
     Dosage: NOT REPORTED
     Route: 041
     Dates: start: 201707, end: 201707
  2. MINOCIN [Suspect]
     Active Substance: MINOCYCLINE HYDROCHLORIDE
     Indication: PRODUCT USED FOR UNKNOWN INDICATION
     Dosage: NOT REPORTED
     Route: 041
     Dates: start: 201707

REACTIONS (2)
  - Infusion related reaction [None]
  - Paraesthesia [Unknown]

NARRATIVE: CASE EVENT DATE: 201707
